FAERS Safety Report 17982950 (Version 2)
Quarter: 2020Q3

REPORT INFORMATION
  Report Type: Spontaneous
  Country: US (occurrence: US)
  Receive Date: 20200706
  Receipt Date: 20200810
  Transmission Date: 20201103
  Serious: No
  Sender: FDA-Public Use
  Company Number: US-PFIZER INC-2020254640

PATIENT
  Age: 46 Year
  Sex: Female

DRUGS (2)
  1. XELJANZ XR [Suspect]
     Active Substance: TOFACITINIB CITRATE
     Dosage: 11 MG, DAILY
     Route: 058
     Dates: start: 20200515
  2. XELJANZ XR [Suspect]
     Active Substance: TOFACITINIB CITRATE
     Indication: RHEUMATOID ARTHRITIS
     Dosage: 11 MG, DAILY
     Route: 048
     Dates: start: 20200515

REACTIONS (11)
  - Headache [Unknown]
  - Back pain [Unknown]
  - Arthralgia [Unknown]
  - Vision blurred [Recovered/Resolved]
  - Eye swelling [Recovered/Resolved]
  - Product use issue [Unknown]
  - Drug ineffective [Unknown]
  - Lacrimation increased [Recovered/Resolved]
  - Abnormal sensation in eye [Recovered/Resolved]
  - Presyncope [Unknown]
  - Off label use [Unknown]

NARRATIVE: CASE EVENT DATE: 2020
